FAERS Safety Report 25085567 (Version 1)
Quarter: 2025Q1

REPORT INFORMATION
  Report Type: Spontaneous
  Country: US (occurrence: US)
  Receive Date: 20250317
  Receipt Date: 20250317
  Transmission Date: 20250409
  Serious: Yes (Other)
  Sender: INCYTE
  Company Number: US-EVENT-002075

PATIENT
  Age: 71 Year

DRUGS (1)
  1. OPZELURA [Suspect]
     Active Substance: RUXOLITINIB PHOSPHATE
     Indication: Rash
     Dosage: 1.5 PERCENT, BID (APPLY TO AFFECTED AREA(S) AS DIRECTED)
     Route: 065

REACTIONS (1)
  - Meniscus injury [Unknown]
